FAERS Safety Report 9134357 (Version 1)
Quarter: 2013Q1

REPORT INFORMATION
  Report Type: Spontaneous
  Country: US (occurrence: US)
  Receive Date: 20130304
  Receipt Date: 20130304
  Transmission Date: 20140127
  Serious: No
  Sender: FDA-Public Use
  Company Number: US-JNJFOC-20130112900

PATIENT
  Age: 19 Year
  Sex: Female

DRUGS (1)
  1. INVEGA SUSTENNA [Suspect]
     Indication: PSYCHOTIC DISORDER
     Route: 042
     Dates: start: 201212, end: 201212

REACTIONS (2)
  - Galactorrhoea [Not Recovered/Not Resolved]
  - Incorrect route of drug administration [Unknown]
